FAERS Safety Report 16647740 (Version 1)
Quarter: 2019Q3

REPORT INFORMATION
  Report Type: Spontaneous
  Country: US (occurrence: US)
  Receive Date: 20190729
  Receipt Date: 20190729
  Transmission Date: 20191004
  Serious: Yes (Hospitalization)
  Sender: FDA-Public Use
  Company Number: None

PATIENT
  Age: 15 Year
  Sex: Female
  Weight: 81.3 kg

DRUGS (2)
  1. METHOREXATE 7.5MG SQ WEEKLY [Concomitant]
  2. INFLIXIMAB [Suspect]
     Active Substance: INFLIXIMAB
     Indication: UVEITIS
     Dosage: ?          OTHER FREQUENCY:EVERY 10 WEEKS;?
     Route: 041

REACTIONS (2)
  - Post transplant lymphoproliferative disorder [None]
  - Epstein-Barr virus infection [None]

NARRATIVE: CASE EVENT DATE: 20190718
